FAERS Safety Report 19083792 (Version 7)
Quarter: 2022Q4

REPORT INFORMATION
  Report Type: Spontaneous
  Country: US (occurrence: US)
  Receive Date: 20210401
  Receipt Date: 20221102
  Transmission Date: 20230112
  Serious: No
  Sender: FDA-Public Use
  Company Number: US-KARYOPHARM-2021KPT000161

PATIENT

DRUGS (11)
  1. XPOVIO [Suspect]
     Active Substance: SELINEXOR
     Indication: Plasma cell myeloma
     Dosage: 80 MG, WEEKLY
     Route: 048
     Dates: start: 20210114, end: 20210131
  2. XPOVIO [Suspect]
     Active Substance: SELINEXOR
     Dosage: 60 MG, WEEKLY
     Route: 048
     Dates: start: 20210201, end: 20220419
  3. XPOVIO [Suspect]
     Active Substance: SELINEXOR
     Dosage: 60 MG, WEEKLY
     Route: 048
     Dates: start: 20220509
  4. DEXAMETHASONE [Concomitant]
     Active Substance: DEXAMETHASONE
     Indication: Product used for unknown indication
  5. ZOFRAN [Concomitant]
     Active Substance: ONDANSETRON HYDROCHLORIDE
     Indication: Nausea
  6. ACYCLOVIR [Concomitant]
     Active Substance: ACYCLOVIR
  7. ELIQUIS [Concomitant]
     Active Substance: APIXABAN
  8. NORVASC [Concomitant]
     Active Substance: AMLODIPINE BESYLATE
  9. SINGULAIR [Concomitant]
     Active Substance: MONTELUKAST SODIUM
  10. OMEPRAZOLE [Concomitant]
     Active Substance: OMEPRAZOLE
  11. BACTRIM DS [Concomitant]
     Active Substance: SULFAMETHOXAZOLE\TRIMETHOPRIM

REACTIONS (11)
  - Pruritus [Unknown]
  - Cold sweat [Unknown]
  - Dysgeusia [Unknown]
  - Dry mouth [Unknown]
  - Muscle spasms [Unknown]
  - Taste disorder [Not Recovered/Not Resolved]
  - Nausea [Recovering/Resolving]
  - Constipation [Unknown]
  - Respiratory tract infection [Unknown]
  - Cataract [Unknown]
  - Product dose omission in error [Unknown]

NARRATIVE: CASE EVENT DATE: 20210101
